FAERS Safety Report 5917676-X (Version None)
Quarter: 2008Q4

REPORT INFORMATION
  Report Type: 
  Country: None (occurrence: None)
  Receive Date: 20081014
  Receipt Date: 20081002
  Transmission Date: 20090506
  Serious: Yes (Other)
  Sender: FDA-Public Use
  Company Number: AU-SANOFI-SYNTHELABO-A01200812351

PATIENT
  Sex: Female

DRUGS (3)
  1. COCAINE [Suspect]
     Indication: DRUG ABUSE
     Dosage: UNK
     Route: 065
     Dates: start: 20061130, end: 20061130
  2. ALCOHOL (CHAMPAGNE) [Suspect]
     Indication: ALCOHOL USE
     Dosage: UNK
     Route: 048
     Dates: start: 20061130, end: 20061130
  3. ZOLPIDEM [Suspect]
     Indication: DRUG ADMINISTRATION ERROR
     Dosage: UNK
     Route: 048
     Dates: start: 20061130, end: 20061130

REACTIONS (4)
  - DISORIENTATION [None]
  - OFF LABEL USE [None]
  - SOMNOLENCE [None]
  - VICTIM OF SEXUAL ABUSE [None]
